FAERS Safety Report 10512960 (Version 4)
Quarter: 2015Q1

REPORT INFORMATION
  Report Type: Report from Study
  Country: US (occurrence: US)
  Receive Date: 20141013
  Receipt Date: 20150123
  Transmission Date: 20150720
  Serious: Yes (Hospitalization)
  Sender: FDA-Public Use
  Company Number: US-BIOGENIDEC-2014BI105036

PATIENT
  Age: 55 Year
  Sex: Female

DRUGS (1)
  1. TYSABRI [Suspect]
     Active Substance: NATALIZUMAB
     Indication: MULTIPLE SCLEROSIS
     Route: 042
     Dates: start: 20061222

REACTIONS (6)
  - Intraductal papilloma of breast [Unknown]
  - Breast discharge [Recovered/Resolved]
  - Pyrexia [Not Recovered/Not Resolved]
  - Postoperative wound infection [Unknown]
  - Breast haemorrhage [Recovered/Resolved]
  - Anaemia [Recovered/Resolved]
